FAERS Safety Report 13309187 (Version 1)
Quarter: 2017Q1

REPORT INFORMATION
  Report Type: Spontaneous
  Country: US (occurrence: US)
  Receive Date: 20170309
  Receipt Date: 20170309
  Transmission Date: 20170428
  Serious: No
  Sender: FDA-Public Use
  Company Number: US-JNJFOC-20161223618

PATIENT
  Age: 26 Year
  Sex: Female
  Weight: 61.24 kg

DRUGS (3)
  1. DOXYCYCLINE. [Concomitant]
     Active Substance: DOXYCYCLINE
     Indication: ACNE
     Route: 065
  2. ORTHO TRI CYCLEN LO [Suspect]
     Active Substance: ETHINYL ESTRADIOL\NORGESTIMATE
     Indication: ACNE
     Dosage: ABOUT 2.5 YEARS AGO
     Route: 048
  3. ORTHO TRI CYCLEN LO [Suspect]
     Active Substance: ETHINYL ESTRADIOL\NORGESTIMATE
     Indication: CONTRACEPTION
     Dosage: ABOUT 2.5 YEARS AGO
     Route: 048

REACTIONS (2)
  - Therapeutic response unexpected [Unknown]
  - Drug dose omission [Unknown]

NARRATIVE: CASE EVENT DATE: 20161225
